FAERS Safety Report 4851789-9 (Version None)
Quarter: 2005Q4

REPORT INFORMATION
  Report Type: 
  Country: None (occurrence: None)
  Receive Date: 20051209
  Receipt Date: 20051124
  Transmission Date: 20060501
  Serious: Yes (Hospitalization)
  Sender: FDA-Public Use
  Company Number: 12985

PATIENT
  Age: 65 Year
  Sex: Male
  Weight: 64 kg

DRUGS (6)
  1. CARBOPLATIN [Suspect]
     Indication: NEOPLASM MALIGNANT
     Dosage: 220 MG WEEKLY IV
     Route: 042
     Dates: start: 20040226
  2. PACLITAXEL [Suspect]
     Indication: NEOPLASM MALIGNANT
     Dosage: 75 MG WEEKLY IV
     Route: 042
     Dates: start: 20040226
  3. ONDANSETRON HYDROCHLORIDE DIHYDRATE [Concomitant]
  4. DEXAMETHASONE [Concomitant]
  5. METOCLOPRAMIDE HYDROCHLORIDE [Concomitant]
  6. PARACETAMOL [Concomitant]

REACTIONS (2)
  - NEUTROPENIA [None]
  - NEUTROPENIC COLITIS [None]
